FAERS Safety Report 5197923-5 (Version None)
Quarter: 2006Q4

REPORT INFORMATION
  Report Type: 
  Country: None (occurrence: None)
  Receive Date: 20061228
  Receipt Date: 20061214
  Transmission Date: 20070319
  Serious: Yes (Other)
  Sender: FDA-Public Use
  Company Number: AND_0498_2006

PATIENT
  Sex: Male

DRUGS (1)
  1. LORATADINE / PSEUDOEPHEDRINE [Suspect]
     Indication: DRUG USE FOR UNKNOWN INDICATION
     Dosage: DF PO
     Route: 048

REACTIONS (1)
  - DYSURIA [None]
